FAERS Safety Report 20703038 (Version 1)
Quarter: 2022Q2

REPORT INFORMATION
  Report Type: Spontaneous
  Country: FR (occurrence: FR)
  Receive Date: 20220413
  Receipt Date: 20220413
  Transmission Date: 20220721
  Serious: Yes (Hospitalization, Other)
  Sender: FDA-Public Use
  Company Number: FR-AFSSAPS-BX20221968

PATIENT
  Age: 50 Year
  Sex: Female
  Weight: 96 kg

DRUGS (6)
  1. ACETAMINOPHEN [Suspect]
     Active Substance: ACETAMINOPHEN
     Indication: Product used for unknown indication
     Dosage: 1 DOSAGE FORM, AS NECESSARY
     Route: 048
     Dates: end: 20220314
  2. TRAMADOL [Suspect]
     Active Substance: TRAMADOL
     Indication: Product used for unknown indication
     Dosage: UNK
     Route: 048
  3. PANTOPRAZOLE SODIUM [Suspect]
     Active Substance: PANTOPRAZOLE SODIUM
     Indication: Gastrooesophageal reflux disease
     Dosage: 1 DOSAGE FORM, ONCE A DAY (1 IN THE EVENING)
     Route: 048
     Dates: start: 20211223, end: 20220314
  4. DIENOGEST [Suspect]
     Active Substance: DIENOGEST
     Indication: Contraception
     Dosage: 1 DOSAGE FORM, ONCE A DAY (1 PER DAY)
     Route: 048
     Dates: start: 20211218, end: 20220314
  5. VENLAFAXINE HYDROCHLORIDE [Suspect]
     Active Substance: VENLAFAXINE HYDROCHLORIDE
     Indication: Depressive symptom
     Dosage: 3 DOSAGE FORM, ONCE A DAY (3 CAPSULES IN THE EVENING)
     Route: 048
     Dates: start: 20220104
  6. CYAMEMAZINE [Concomitant]
     Active Substance: CYAMEMAZINE
     Indication: Product used for unknown indication
     Dosage: UNK
     Route: 048
     Dates: start: 20220101

REACTIONS (1)
  - Hepatitis [Not Recovered/Not Resolved]

NARRATIVE: CASE EVENT DATE: 20220309
